FAERS Safety Report 13634474 (Version 1)
Quarter: 2017Q2

REPORT INFORMATION
  Report Type: Spontaneous
  Country: US (occurrence: US)
  Receive Date: 20170531
  Receipt Date: 20170531
  Transmission Date: 20170830
  Serious: No
  Sender: FDA-Public Use
  Company Number: US-ASTELLAS-1632377

PATIENT
  Sex: Female

DRUGS (1)
  1. TARCEVA [Suspect]
     Active Substance: ERLOTINIB HYDROCHLORIDE
     Indication: LUNG NEOPLASM MALIGNANT
     Route: 048
     Dates: start: 20150709

REACTIONS (4)
  - Arthralgia [Not Recovered/Not Resolved]
  - Dry mouth [Not Recovered/Not Resolved]
  - Nasal dryness [Not Recovered/Not Resolved]
  - Fatigue [Not Recovered/Not Resolved]
